FAERS Safety Report 24703034 (Version 3)
Quarter: 2025Q1

REPORT INFORMATION
  Report Type: Spontaneous
  Country: US (occurrence: US)
  Receive Date: 20241205
  Receipt Date: 20250116
  Transmission Date: 20250409
  Serious: Yes (Hospitalization, Other)
  Sender: PFIZER
  Company Number: US-PFIZER INC-202400315679

PATIENT
  Age: 77 Year
  Sex: Female

DRUGS (1)
  1. IBRANCE [Suspect]
     Active Substance: PALBOCICLIB
     Route: 048
     Dates: start: 20241029

REACTIONS (5)
  - Second primary malignancy [Unknown]
  - Neoplasm of appendix [Unknown]
  - Appendicitis [Unknown]
  - Choledochectomy [Unknown]
  - Stress [Unknown]

NARRATIVE: CASE EVENT DATE: 20241201
